FAERS Safety Report 16401571 (Version 1)
Quarter: 2019Q2

REPORT INFORMATION
  Report Type: Spontaneous
  Country: CN (occurrence: CN)
  Receive Date: 20190606
  Receipt Date: 20190606
  Transmission Date: 20190711
  Serious: Yes (Death, Other)
  Sender: FDA-Public Use
  Company Number: CN-VALIDUS PHARMACEUTICALS LLC-CN-2019VAL000270

PATIENT

DRUGS (19)
  1. LENALIDOMIDE [Concomitant]
     Active Substance: LENALIDOMIDE
     Indication: PLASMA CELL MYELOMA
     Dosage: UNK
     Route: 065
  2. LENALIDOMIDE [Concomitant]
     Active Substance: LENALIDOMIDE
     Indication: OFF LABEL USE
  3. NIFEDIPINE. [Concomitant]
     Active Substance: NIFEDIPINE
     Indication: OFF LABEL USE
     Dosage: UNK
     Route: 065
  4. RECOMBINANT HUMAN ERYTHROPOIETIN [Concomitant]
     Active Substance: ERYTHROPOIETIN
     Indication: OFF LABEL USE
     Dosage: UNK
     Route: 065
  5. INSULIN [Concomitant]
     Active Substance: INSULIN NOS
     Indication: OFF LABEL USE
  6. METHYLCOBALAMIN. [Concomitant]
     Active Substance: METHYLCOBALAMIN
     Indication: CHRONIC KIDNEY DISEASE
     Dosage: UNK
     Route: 065
  7. INSULIN GLARGINE [Concomitant]
     Active Substance: INSULIN GLARGINE
     Indication: OFF LABEL USE
     Dosage: UNK
     Route: 065
  8. ROCALTROL [Suspect]
     Active Substance: CALCITRIOL
     Indication: CHRONIC KIDNEY DISEASE
     Dosage: UNK
     Route: 065
     Dates: end: 20180101
  9. ROCALTROL [Suspect]
     Active Substance: CALCITRIOL
     Indication: BACK PAIN
     Dosage: 0.25 ?G, UNK
     Dates: end: 20190101
  10. INSULIN [Concomitant]
     Active Substance: INSULIN NOS
     Indication: TYPE 2 DIABETES MELLITUS
     Dosage: UNK
     Route: 065
  11. LANTHANUM CARBONATE. [Concomitant]
     Active Substance: LANTHANUM CARBONATE
     Indication: OFF LABEL USE
     Dosage: UNK
     Route: 065
     Dates: end: 20180912
  12. FOLIC ACID. [Concomitant]
     Active Substance: FOLIC ACID
     Indication: OFF LABEL USE
     Dosage: UNK
     Route: 065
  13. ROCALTROL [Suspect]
     Active Substance: CALCITRIOL
     Indication: OFF LABEL USE
  14. METHYLCOBALAMIN. [Concomitant]
     Active Substance: METHYLCOBALAMIN
     Indication: OFF LABEL USE
  15. CALCIUM ACETATE. [Concomitant]
     Active Substance: CALCIUM ACETATE
     Indication: CHRONIC KIDNEY DISEASE
     Dosage: UNK
     Route: 065
  16. CALCIUM ACETATE. [Concomitant]
     Active Substance: CALCIUM ACETATE
     Indication: OFF LABEL USE
  17. AROTINOLOL [Concomitant]
     Active Substance: AROTINOLOL
     Indication: OFF LABEL USE
     Dosage: UNK
     Route: 065
  18. CEPHALOSPORIN C [Concomitant]
     Active Substance: CEPHALOSPORIN C
     Indication: OFF LABEL USE
     Dosage: UNK
     Route: 065
  19. BIOSYNTHETIC HUMAN INSULIN [Concomitant]
     Indication: OFF LABEL USE
     Dosage: UNK
     Route: 065

REACTIONS (44)
  - Tricuspid valve incompetence [Unknown]
  - Pelvic fluid collection [Unknown]
  - Spinal cord neoplasm [Unknown]
  - Musculoskeletal pain [Unknown]
  - Anaemia [Unknown]
  - Mitral valve incompetence [Unknown]
  - Pyrexia [Unknown]
  - Ill-defined disorder [Unknown]
  - Diabetic nephropathy [Unknown]
  - Ascites [Unknown]
  - Splenomegaly [Unknown]
  - Amyloidosis [Unknown]
  - Urine output decreased [Unknown]
  - Lung disorder [Unknown]
  - Chronic kidney disease-mineral and bone disorder [Unknown]
  - Infection [Unknown]
  - Nervous system injury [Unknown]
  - Arthralgia [Unknown]
  - Blister [Unknown]
  - Chest discomfort [Unknown]
  - Pleural effusion [Unknown]
  - Anal incontinence [Unknown]
  - Renal impairment [Unknown]
  - Hypercalcaemia [Unknown]
  - Haemorrhagic diathesis [Unknown]
  - Death [Fatal]
  - Intentional product use issue [Unknown]
  - Plasma cell myeloma [Unknown]
  - Cough [Unknown]
  - Cardiac septal hypertrophy [Unknown]
  - Ventricular hypertrophy [Unknown]
  - Back pain [Unknown]
  - Dyspnoea [Unknown]
  - Arteriosclerosis [Unknown]
  - Gallbladder oedema [Unknown]
  - Hepatic vein dilatation [Unknown]
  - Fracture [Unknown]
  - Pain in extremity [Unknown]
  - Off label use [Unknown]
  - Productive cough [Unknown]
  - Gallbladder enlargement [Unknown]
  - Fall [Unknown]
  - Skeletal injury [Unknown]
  - Hyperviscosity syndrome [Unknown]
